FAERS Safety Report 11307708 (Version 2)
Quarter: 2016Q3

REPORT INFORMATION
  Report Type: Spontaneous
  Country: CA (occurrence: CA)
  Receive Date: 20150724
  Receipt Date: 20160826
  Transmission Date: 20161109
  Serious: Yes (Hospitalization)
  Sender: FDA-Public Use
  Company Number: CA-ROCHE-1612713

PATIENT
  Age: 71 Year
  Sex: Male

DRUGS (1)
  1. XOLAIR [Suspect]
     Active Substance: OMALIZUMAB
     Indication: ASTHMA
     Route: 058
     Dates: start: 20150312

REACTIONS (5)
  - Productive cough [Unknown]
  - Dyspnoea exertional [Unknown]
  - Diarrhoea [Unknown]
  - Vomiting [Unknown]
  - Asthma [Unknown]

NARRATIVE: CASE EVENT DATE: 20150421
